FAERS Safety Report 4445982-7 (Version None)
Quarter: 2004Q3

REPORT INFORMATION
  Report Type: 
  Country: None (occurrence: None)
  Receive Date: 20040910
  Receipt Date: 20040415
  Transmission Date: 20050211
  Serious: Yes (Disabling)
  Sender: FDA-Public Use
  Company Number: US-MERCK-0404USA01617

PATIENT
  Age: 65 Year
  Sex: Female

DRUGS (11)
  1. XANAX [Concomitant]
     Route: 065
  2. METHADONE HCL [Concomitant]
     Route: 065
  3. MORPHINE [Concomitant]
     Route: 065
  4. ACIPHEX [Concomitant]
     Route: 065
  5. VIOXX [Suspect]
     Indication: TENDONITIS
     Route: 048
     Dates: start: 20040412, end: 20040401
  6. VIOXX [Suspect]
     Route: 048
     Dates: start: 20040401, end: 20040101
  7. VIOXX [Suspect]
     Indication: ARTHRITIS
     Route: 048
     Dates: start: 20040412, end: 20040401
  8. VIOXX [Suspect]
     Route: 048
     Dates: start: 20040401, end: 20040101
  9. SENOKOT [Concomitant]
     Route: 065
  10. ZANAFLEX [Concomitant]
     Route: 065
  11. TOPAMAX [Concomitant]
     Route: 065

REACTIONS (6)
  - DIARRHOEA [None]
  - FATIGUE [None]
  - FEELING ABNORMAL [None]
  - GASTRITIS [None]
  - MEDICATION ERROR [None]
  - URINARY TRACT INFECTION [None]
